FAERS Safety Report 20845379 (Version 3)
Quarter: 2022Q3

REPORT INFORMATION
  Report Type: Spontaneous
  Country: US (occurrence: US)
  Receive Date: 20220518
  Receipt Date: 20220826
  Transmission Date: 20221027
  Serious: No
  Sender: FDA-Public Use
  Company Number: US-LUPIN PHARMACEUTICALS INC.-2022-06925

PATIENT
  Age: 49 Year
  Sex: Male

DRUGS (15)
  1. GABAPENTIN [Suspect]
     Active Substance: GABAPENTIN
     Indication: Neck pain
     Dosage: 300 MG, TID
     Route: 065
  2. MEMANTINE [Suspect]
     Active Substance: MEMANTINE
     Indication: Neck pain
     Dosage: 10 MG, BID
     Route: 065
  3. MELOXICAM [Suspect]
     Active Substance: MELOXICAM
     Indication: Rheumatoid arthritis
     Dosage: UNK
     Route: 065
  4. MELOXICAM [Suspect]
     Active Substance: MELOXICAM
     Indication: Neck pain
  5. MELOXICAM [Suspect]
     Active Substance: MELOXICAM
     Indication: Muscle spasms
  6. DULOXETINE [Suspect]
     Active Substance: DULOXETINE
     Indication: Neck pain
     Dosage: 20 MG, QD
     Route: 065
  7. ETODOLAC [Suspect]
     Active Substance: ETODOLAC
     Indication: Rheumatoid arthritis
     Dosage: 300 MG, TID
     Route: 065
  8. ETODOLAC [Suspect]
     Active Substance: ETODOLAC
     Indication: Neck pain
  9. ETODOLAC [Suspect]
     Active Substance: ETODOLAC
     Indication: Muscle spasms
  10. CARVEDILOL [Concomitant]
     Active Substance: CARVEDILOL
     Indication: Product used for unknown indication
     Dosage: 40 MG, QD
     Route: 065
  11. INSULIN NOS [Concomitant]
     Active Substance: INSULIN NOS
     Indication: Product used for unknown indication
     Dosage: UNK
     Route: 065
  12. AMLODIPINE [Concomitant]
     Active Substance: AMLODIPINE BESYLATE
     Indication: Product used for unknown indication
     Dosage: 5 MG, QD
     Route: 065
  13. OLMESARTAN [Concomitant]
     Active Substance: OLMESARTAN
     Indication: Product used for unknown indication
     Dosage: 40 MG, QD
     Route: 065
  14. ROBAXIN [Concomitant]
     Active Substance: METHOCARBAMOL
     Indication: Neck pain
     Dosage: 500 MG, TID
     Route: 065
  15. ROBAXIN [Concomitant]
     Active Substance: METHOCARBAMOL
     Indication: Muscle spasms

REACTIONS (3)
  - Drug ineffective for unapproved indication [Unknown]
  - Off label use [Unknown]
  - Somnolence [Unknown]
